FAERS Safety Report 25596664 (Version 1)
Quarter: 2025Q3

REPORT INFORMATION
  Report Type: Other
  Country: GB (occurrence: GB)
  Receive Date: 20250723
  Receipt Date: 20250723
  Transmission Date: 20251021
  Serious: Yes (Hospitalization, Other)
  Sender: GLENMARK
  Company Number: GB-MHRA-EMIS-11548-99216f2d-9b7e-4a4a-9268-c06cce03354b

PATIENT
  Age: 54 Year
  Sex: Male
  Weight: 76 kg

DRUGS (11)
  1. DAPAGLIFLOZIN [Suspect]
     Active Substance: DAPAGLIFLOZIN
     Indication: Product used for unknown indication
     Dosage: 1 DOSAGE FORM, OD (ONE TO BE TAKEN DAILY
     Route: 065
     Dates: start: 20220207, end: 20250304
  2. MORPHINE SULFATE [Concomitant]
     Active Substance: MORPHINE SULFATE
     Indication: Product used for unknown indication
     Route: 065
     Dates: start: 20250411, end: 20250628
  3. Aymes shake [Concomitant]
     Indication: Product used for unknown indication
     Dosage: UNK UNK, BID (USE AS DIRECTED BY THE DIETETICS TEAM TWICE DAILY (BANANA FLAVOUR)
     Route: 065
     Dates: start: 20250415, end: 20250528
  4. Aymes shake [Concomitant]
     Dosage: UNK, ONE TWICE DAILY AS DIRECTED
     Route: 065
     Dates: start: 20250415, end: 20250528
  5. Aymes shake [Concomitant]
     Dosage: UNK, BID, ONE TWICE DAILY AS DIRECTED
     Route: 065
     Dates: start: 20250617
  6. Aymes shake [Concomitant]
     Dosage: UNK, BID, USE AS DIRECTED BY THE DIETETICS TEAM TWICE DAILY
     Route: 065
     Dates: start: 20250617
  7. HYDROXOCOBALAMIN [Concomitant]
     Active Substance: HYDROXOCOBALAMIN
     Indication: Product used for unknown indication
     Route: 065
     Dates: start: 20250506, end: 20250618
  8. AMOXICILLIN [Concomitant]
     Active Substance: AMOXICILLIN
     Indication: Product used for unknown indication
     Dosage: 1 DOSAGE FORM, TID (TAKE ONE CAPSULE THREE TIMES A DAY
     Route: 065
     Dates: start: 20250516, end: 20250614
  9. PREDNISOLONE [Concomitant]
     Active Substance: PREDNISOLONE
     Indication: Product used for unknown indication
     Dosage: 8 DOSAGE FORM, OD
     Route: 065
     Dates: start: 20250516, end: 20250621
  10. DOXYCYCLINE [Concomitant]
     Active Substance: DOXYCYCLINE
     Indication: Product used for unknown indication
     Route: 065
     Dates: start: 20250523, end: 20250523
  11. AMOXICILLIN\CLAVULANATE POTASSIUM [Concomitant]
     Active Substance: AMOXICILLIN\CLAVULANATE POTASSIUM
     Indication: Product used for unknown indication
     Dosage: 1 DOSAGE FORM, TID (TAKE ONE TABLET THREE TIMES A DAY
     Route: 065
     Dates: start: 20250523, end: 20250621

REACTIONS (2)
  - Septic shock [Unknown]
  - Fournier^s gangrene [Recovered/Resolved with Sequelae]

NARRATIVE: CASE EVENT DATE: 20250210
